FAERS Safety Report 8402414-1 (Version None)
Quarter: 2012Q2

REPORT INFORMATION
  Report Type: 
  Country: None (occurrence: None)
  Receive Date: 20120601
  Receipt Date: 20120529
  Transmission Date: 20120825
  Serious: Yes (Death)
  Sender: FDA-Public Use
  Company Number: CO-PFIZER INC-2012033161

PATIENT
  Age: 55 Year
  Sex: Female

DRUGS (4)
  1. CRIZOTINIB [Suspect]
     Indication: NON-SMALL CELL LUNG CANCER
     Dosage: 250 MG, 2X/DAY
     Route: 048
     Dates: start: 20111012
  2. ONDANSETRON [Concomitant]
     Indication: VOMITING
     Dosage: 24 MG BEFORE OF CHEMOTHERAPY
     Route: 042
  3. DEXAMETASON [Concomitant]
     Indication: NON-SMALL CELL LUNG CANCER
     Dosage: 20 MG BEFORE OF THE CHEMOTHERAPY
     Route: 042
  4. PEMETREXED [Concomitant]
     Indication: NON-SMALL CELL LUNG CANCER
     Dosage: 765 MG EVERY 21 DAYS
     Route: 042

REACTIONS (6)
  - PNEUMONIA [None]
  - ACUTE RESPIRATORY DISTRESS SYNDROME [None]
  - HAEMATOTOXICITY [None]
  - VISUAL IMPAIRMENT [None]
  - NAUSEA [None]
  - VOMITING [None]
